FAERS Safety Report 25200991 (Version 1)
Quarter: 2025Q2

REPORT INFORMATION
  Report Type: Spontaneous
  Country: FR (occurrence: FR)
  Receive Date: 20250416
  Receipt Date: 20250416
  Transmission Date: 20250716
  Serious: Yes (Other)
  Sender: AMGEN
  Company Number: FR-AMGEN-FRASP2025071637

PATIENT

DRUGS (8)
  1. ETANERCEPT [Suspect]
     Active Substance: ETANERCEPT
     Indication: Immunosuppression
     Route: 040
  2. ETANERCEPT [Suspect]
     Active Substance: ETANERCEPT
     Indication: Off label use
     Route: 058
  3. TACROLIMUS [Concomitant]
     Active Substance: TACROLIMUS
  4. MYCOPHENOLATE MOFETIL [Concomitant]
     Active Substance: MYCOPHENOLATE MOFETIL
  5. MYCOPHENOLIC ACID [Concomitant]
     Active Substance: MYCOPHENOLIC ACID
  6. PREDNISONE [Concomitant]
     Active Substance: PREDNISONE
     Route: 048
  7. ASPIRIN [Concomitant]
     Active Substance: ASPIRIN
  8. HEPARIN [Concomitant]
     Active Substance: HEPARIN SODIUM

REACTIONS (8)
  - Transplant rejection [Unknown]
  - Complications of transplant surgery [Unknown]
  - Transplant failure [Unknown]
  - Cytomegalovirus viraemia [Unknown]
  - Polyomavirus viraemia [Unknown]
  - Fungal infection [Unknown]
  - Bacterial infection [Unknown]
  - Off label use [Unknown]
